FAERS Safety Report 12319541 (Version 1)
Quarter: 2016Q2

REPORT INFORMATION
  Report Type: Spontaneous
  Country: US (occurrence: US)
  Receive Date: 20160429
  Receipt Date: 20160429
  Transmission Date: 20160815
  Serious: Yes (Other)
  Sender: FDA-Public Use
  Company Number: US-ROCHE-1624941

PATIENT
  Age: 86 Year
  Sex: Female

DRUGS (1)
  1. AVASTIN [Suspect]
     Active Substance: BEVACIZUMAB
     Indication: MACULAR DEGENERATION
     Route: 065

REACTIONS (6)
  - Hepatic enzyme abnormal [Unknown]
  - C-reactive protein increased [Unknown]
  - Melaena [Unknown]
  - Fatigue [Unknown]
  - Off label use [Unknown]
  - Constipation [Unknown]
